FAERS Safety Report 9825168 (Version 1)
Quarter: 2013Q4

REPORT INFORMATION
  Report Type: Spontaneous
  Country: US (occurrence: None)
  Receive Date: 20131028
  Receipt Date: 20131028
  Transmission Date: 20140711
  Serious: Yes (Other)
  Sender: FDA-Public Use
  Company Number: 2013US001269

PATIENT
  Age: 60 Year
  Sex: Female
  Weight: 58 kg

DRUGS (8)
  1. ICLUSIG (PONATINIB) TABLET, 45 MG [Suspect]
     Indication: CHRONIC MYELOID LEUKAEMIA
     Route: 048
     Dates: start: 20130226, end: 20130227
  2. NEXIUM (ESOMPRAZOLE SODIUM) [Concomitant]
  3. TRAZODONE (TRAZODONE) [Concomitant]
  4. LEXAPRO (ESCITALOPRAM OXALATE) [Concomitant]
  5. MULTIVITAMINS (VITAMNS NOS) [Concomitant]
  6. CALCIUM + VITAMIN D (CALCIUM, COLECALCIFEROL) [Concomitant]
  7. VITAMIN B COMPLEX (VITAMIN  B COMPLEX) [Concomitant]
  8. VITAMIN D (VITAMIN D) [Concomitant]

REACTIONS (5)
  - Dyskinesia [None]
  - Headache [None]
  - Abdominal pain upper [None]
  - Asthenia [None]
  - Dizziness [None]
